FAERS Safety Report 11836402 (Version 1)
Quarter: 2015Q4

REPORT INFORMATION
  Report Type: Spontaneous
  Country: FR (occurrence: FR)
  Receive Date: 20151215
  Receipt Date: 20151215
  Transmission Date: 20160305
  Serious: Yes (Hospitalization, Other)
  Sender: FDA-Public Use
  Company Number: FR-BAXTER-2015BAX066166

PATIENT
  Age: 65 Year
  Sex: Female

DRUGS (7)
  1. ENDOXAN 1000 MG, POUDRE POUR SOLUTION INJECTABLE [Suspect]
     Active Substance: CYCLOPHOSPHAMIDE
     Indication: BREAST CANCER
     Dosage: FIRST 6 COURSES
     Route: 042
  2. ENDOXAN 1000 MG, POUDRE POUR SOLUTION INJECTABLE [Suspect]
     Active Substance: CYCLOPHOSPHAMIDE
     Dosage: DAY 1 OF THE 7TH COURSE OF CHEMOTHERAPY
     Route: 042
     Dates: start: 20121127, end: 20121127
  3. MYOCET [Suspect]
     Active Substance: DOXORUBICIN
     Dosage: DAY 1 OF THE 7TH COURSE OF CHEMOTHERAPY
     Route: 042
     Dates: start: 20121127, end: 20121127
  4. EMEND [Concomitant]
     Active Substance: APREPITANT
     Indication: PREMEDICATION
     Route: 065
  5. MYOCET [Suspect]
     Active Substance: DOXORUBICIN
     Indication: BREAST CANCER
     Dosage: FIRST 6 COURSES
     Route: 042
  6. MYOCET [Suspect]
     Active Substance: DOXORUBICIN
     Dosage: RESTARTED AFTER 30 MINUTES AT A REDUCED SPEED
     Route: 042
  7. ZOPHREN [Concomitant]
     Active Substance: ONDANSETRON
     Indication: PREMEDICATION
     Route: 065

REACTIONS (5)
  - Pain [Unknown]
  - Dyspnoea [Unknown]
  - Neck pain [Unknown]
  - Infusion related reaction [Recovered/Resolved]
  - Bone pain [Recovered/Resolved]

NARRATIVE: CASE EVENT DATE: 20120706
